FAERS Safety Report 11630327 (Version 6)
Quarter: 2016Q3

REPORT INFORMATION
  Report Type: Report from Study
  Country: FR (occurrence: FR)
  Receive Date: 20151014
  Receipt Date: 20160808
  Transmission Date: 20161109
  Serious: Yes (Hospitalization, Other)
  Sender: FDA-Public Use
  Company Number: FR-BAYER-2015-349836

PATIENT
  Age: 49 Year
  Sex: Male
  Weight: 66 kg

DRUGS (33)
  1. REGORAFENIB [Suspect]
     Active Substance: REGORAFENIB
     Indication: BILIARY CANCER METASTATIC
     Dosage: LAST DOSE PRIOR TO SAE: 80 MG
     Route: 048
  2. GEMCITABINE [Suspect]
     Active Substance: GEMCITABINE\GEMCITABINE HYDROCHLORIDE
     Indication: METASTASES TO MUSCLE
     Dosage: LAST DOSE PRIOR TO SAE: 1544 MG
     Route: 042
     Dates: end: 20151022
  3. OXALIPLATIN. [Suspect]
     Active Substance: OXALIPLATIN
     Indication: BILIARY CANCER METASTATIC
     Dosage: 177.6 MG
     Route: 042
     Dates: start: 20150528, end: 20150723
  4. DEXERYL [GLYCEROL,PARAFFIN, LIQUID,WHITE SOFT PARAFFIN] [Concomitant]
     Indication: DRY SKIN PROPHYLAXIS
     Dosage: UNK
     Dates: start: 20150528
  5. FENTANYL. [Concomitant]
     Active Substance: FENTANYL
     Indication: PAIN
     Dosage: UNK
     Dates: start: 20150909
  6. TITANOREINE [CHONDRUS CRISPUS EXTRACT,TITANIUM DIOXIDE,ZINC OXIDE] [Concomitant]
     Indication: HAEMORRHOIDS
  7. DOLIPRANE [Concomitant]
     Active Substance: ACETAMINOPHEN
     Indication: ARTHRALGIA
     Dosage: UNK
     Route: 048
     Dates: start: 20150520, end: 20150612
  8. REGORAFENIB [Suspect]
     Active Substance: REGORAFENIB
     Indication: METASTASES TO LIVER
     Dosage: 80 UNK, UNK
     Route: 048
     Dates: start: 20150528, end: 20150908
  9. OXALIPLATIN. [Suspect]
     Active Substance: OXALIPLATIN
     Indication: METASTASES TO LIVER
     Dosage: LAST DOSE PRIOR TO SAE: 120 MG
     Route: 042
     Dates: end: 20150930
  10. OXALIPLATIN. [Suspect]
     Active Substance: OXALIPLATIN
     Indication: BILIARY CANCER METASTATIC
     Dosage: LAST DOSE PRIOR TO SAE: 117.6 MG
     Route: 042
     Dates: end: 20151112
  11. OXALIPLATIN. [Suspect]
     Active Substance: OXALIPLATIN
     Indication: BILIARY CANCER METASTATIC
     Dosage: 114.60 MG, QD
     Route: 042
     Dates: end: 20151211
  12. INEXIUM [Concomitant]
     Active Substance: ESOMEPRAZOLE
     Indication: ABDOMINAL PAIN UPPER
     Dosage: UNK
     Dates: start: 20150625
  13. REGORAFENIB [Suspect]
     Active Substance: REGORAFENIB
     Indication: BILIARY CANCER METASTATIC
     Dosage: 80 MG, QD
     Route: 048
     Dates: start: 20150528, end: 20150610
  14. GEMCITABINE [Suspect]
     Active Substance: GEMCITABINE\GEMCITABINE HYDROCHLORIDE
     Indication: METASTASES TO LIVER
     Dosage: LAST DOSE PRIOR TO SAE: 1600 MG
     Route: 042
     Dates: end: 20150930
  15. OXALIPLATIN. [Suspect]
     Active Substance: OXALIPLATIN
     Indication: METASTASES TO BONE
     Dosage: UNK
     Route: 042
     Dates: start: 20150528, end: 20150902
  16. PRIMPERAN [Concomitant]
     Active Substance: METOCLOPRAMIDE HYDROCHLORIDE
     Indication: NAUSEA
     Dosage: UNK
     Dates: start: 20150704
  17. REGORAFENIB [Suspect]
     Active Substance: REGORAFENIB
     Indication: METASTASES TO BONE
     Dosage: UNK
     Route: 048
     Dates: start: 20150625
  18. REGORAFENIB [Suspect]
     Active Substance: REGORAFENIB
     Indication: BILIARY CANCER METASTATIC
     Dosage: LAST DOSE PRIOR TO SAE: 80MG
  19. GEMCITABINE [Suspect]
     Active Substance: GEMCITABINE\GEMCITABINE HYDROCHLORIDE
     Indication: BILIARY CANCER METASTATIC
     Dosage: 1998 MG
     Route: 042
     Dates: start: 20150528, end: 20150604
  20. GEMCITABINE [Suspect]
     Active Substance: GEMCITABINE\GEMCITABINE HYDROCHLORIDE
     Indication: METASTASES TO BONE
     Dosage: UNK
     Route: 042
     Dates: start: 20150528, end: 20150902
  21. OXALIPLATIN. [Suspect]
     Active Substance: OXALIPLATIN
     Indication: METASTASES TO MUSCLE
     Dosage: LAST DOSE PRIOR TO SAE: 115.8 MG
     Route: 042
     Dates: end: 20151022
  22. VOGALENE [Concomitant]
     Active Substance: METOPIMAZINE
     Indication: NAUSEA
     Dosage: UNK
     Dates: start: 20150923, end: 20151001
  23. ONDANSETRON [Concomitant]
     Active Substance: ONDANSETRON
     Indication: NAUSEA
     Dosage: UNK
     Route: 042
     Dates: start: 20151003, end: 20151005
  24. REGORAFENIB [Suspect]
     Active Substance: REGORAFENIB
     Indication: METASTASES TO MUSCLE
     Dosage: LAST DOSE PRIOR TO SAE: 80 MG
     Route: 048
  25. DOLIPRANE [Concomitant]
     Active Substance: ACETAMINOPHEN
     Indication: BACK PAIN
  26. NEULASTA [Concomitant]
     Active Substance: PEGFILGRASTIM
     Indication: NEUTROPENIA
     Dosage: UNK
     Route: 058
  27. ZOVIRAX [Concomitant]
     Active Substance: ACYCLOVIR
     Indication: SKIN INFECTION
     Dosage: UNK
     Route: 003
     Dates: start: 20150604, end: 20150612
  28. ULCAR [Concomitant]
     Active Substance: SUCRALFATE
     Indication: ABDOMINAL PAIN UPPER
     Dosage: UNK
     Dates: start: 20150923, end: 20151001
  29. REGORAFENIB [Suspect]
     Active Substance: REGORAFENIB
     Indication: BILIARY CANCER METASTATIC
     Dosage: LAST DOSE PRIOR TO SAE: 80 MG
     Route: 048
  30. GEMCITABINE [Suspect]
     Active Substance: GEMCITABINE\GEMCITABINE HYDROCHLORIDE
     Indication: BILIARY CANCER METASTATIC
     Dosage: 1528 MG, QD
     Route: 042
     Dates: end: 20151211
  31. PLITICAN [Concomitant]
     Active Substance: ALIZAPRIDE HYDROCHLORIDE
     Indication: NAUSEA
     Dosage: UNK
     Dates: start: 20151003, end: 20151004
  32. GEMCITABINE [Suspect]
     Active Substance: GEMCITABINE\GEMCITABINE HYDROCHLORIDE
     Indication: BILIARY CANCER METASTATIC
     Dosage: LAST DOSE PRIOR TO SAE: 1568 MG
     Route: 042
     Dates: end: 20151112
  33. MOVICOL [Concomitant]
     Active Substance: POLYETHYLENE GLYCOL 3350\POTASSIUM CHLORIDE\SODIUM BICARBONATE\SODIUM CHLORIDE
     Indication: CONSTIPATION
     Dosage: UNK
     Route: 048
     Dates: start: 20150609, end: 20150611

REACTIONS (19)
  - Anaemia [Recovered/Resolved]
  - Anaemia [Recovered/Resolved]
  - Anaemia [Recovered/Resolved]
  - Hypokalaemia [Recovered/Resolved]
  - Anaemia [Recovered/Resolved]
  - Anaemia [Recovered/Resolved]
  - Anaemia [Not Recovered/Not Resolved]
  - Hypercalcaemia [None]
  - Rib fracture [Not Recovered/Not Resolved]
  - Hypercalcaemia [Not Recovered/Not Resolved]
  - Chest pain [Recovered/Resolved]
  - Neck pain [Not Recovered/Not Resolved]
  - General physical health deterioration [Not Recovered/Not Resolved]
  - Abdominal pain [Not Recovered/Not Resolved]
  - Anaemia [Recovered/Resolved]
  - Anaemia [Recovered/Resolved]
  - Neck pain [Not Recovered/Not Resolved]
  - Nausea [Recovered/Resolved]
  - Fatigue [Recovered/Resolved]

NARRATIVE: CASE EVENT DATE: 20150605
